FAERS Safety Report 7789498-9 (Version None)
Quarter: 2011Q3

REPORT INFORMATION
  Report Type: 
  Country: None (occurrence: None)
  Receive Date: 20110930
  Receipt Date: 20110921
  Transmission Date: 20111222
  Serious: Yes (Hospitalization)
  Sender: FDA-Public Use
  Company Number: US-JNJFOC-20110106398

PATIENT
  Sex: Male
  Weight: 30.8 kg

DRUGS (16)
  1. ZINC SULFATE [Concomitant]
  2. IRON [Concomitant]
  3. OMEPRAZOLE [Concomitant]
  4. MULTI-VITAMINS [Concomitant]
  5. FLAGYL [Concomitant]
     Dates: end: 20101201
  6. PROBIOTICS [Concomitant]
  7. SULFASALAZINE [Concomitant]
     Dates: end: 20110104
  8. AZATHIOPRINE [Concomitant]
  9. IMURAN [Suspect]
     Indication: CROHN'S DISEASE
     Dates: end: 20110103
  10. PREDNISOLONE [Concomitant]
  11. ANTIBIOTICS [Concomitant]
     Indication: CROHN'S DISEASE
  12. REMICADE [Suspect]
     Route: 042
     Dates: start: 20101213
  13. REMICADE [Suspect]
     Route: 042
     Dates: start: 20101213
  14. REMICADE [Suspect]
     Indication: COLITIS ULCERATIVE
     Route: 042
     Dates: start: 20070514
  15. REMICADE [Suspect]
     Indication: CROHN'S DISEASE
     Route: 042
     Dates: start: 20070514
  16. FOLIC ACID [Concomitant]

REACTIONS (1)
  - VARICELLA [None]
